FAERS Safety Report 5198715-3 (Version None)
Quarter: 2007Q1

REPORT INFORMATION
  Report Type: 
  Country: None (occurrence: None)
  Receive Date: 20070104
  Receipt Date: 20061228
  Transmission Date: 20070707
  Serious: Yes (Other)
  Sender: FDA-Public Use
  Company Number: US-GLAXOSMITHKLINE-A0619971A

PATIENT
  Age: 24 Year
  Sex: Female
  Weight: 51.8 kg

DRUGS (3)
  1. WELLBUTRIN XL [Suspect]
     Dosage: 300MG PER DAY
     Route: 048
     Dates: start: 20060725, end: 20060911
  2. LEXAPRO [Concomitant]
     Dates: end: 20060911
  3. ALESSE [Concomitant]
     Indication: CONTRACEPTION

REACTIONS (15)
  - ANOREXIA [None]
  - ASTHENIA [None]
  - BACK PAIN [None]
  - CYANOSIS [None]
  - FALL [None]
  - FATIGUE [None]
  - GRAND MAL CONVULSION [None]
  - LOSS OF CONSCIOUSNESS [None]
  - MEMORY IMPAIRMENT [None]
  - NAUSEA [None]
  - NUCLEAR MAGNETIC RESONANCE IMAGING ABNORMAL [None]
  - POLLAKIURIA [None]
  - RASH [None]
  - TENSION HEADACHE [None]
  - THIRST [None]
